FAERS Safety Report 5002192-2 (Version None)
Quarter: 2006Q2

REPORT INFORMATION
  Report Type: 
  Country: None (occurrence: None)
  Receive Date: 20060510
  Receipt Date: 20060419
  Transmission Date: 20061013
  Serious: Yes (Other)
  Sender: FDA-Public Use
  Company Number: HP200600066

PATIENT
  Age: 35 Year
  Sex: Male

DRUGS (1)
  1. EXACTACAIN(BENZOCAINE, TETRACAINE HYDROCHLORIDE, BUTAMBEN) SPRAY [Suspect]
     Dosage: 3 SPRAYS SINGLE, OROPHARINGEAL
     Route: 049
     Dates: start: 20060316, end: 20060316

REACTIONS (1)
  - DEVICE MALFUNCTION [None]
